FAERS Safety Report 5156435-5 (Version None)
Quarter: 2006Q4

REPORT INFORMATION
  Report Type: 
  Country: None (occurrence: None)
  Receive Date: 20061122
  Receipt Date: 20061115
  Transmission Date: 20070319
  Serious: Yes (Other)
  Sender: FDA-Public Use
  Company Number: JP-JNJFOC-20051205693

PATIENT
  Sex: Male

DRUGS (8)
  1. RISPERDAL [Suspect]
     Route: 048
  2. RISPERDAL [Suspect]
     Indication: SCHIZOPHRENIA
     Route: 048
  3. RISPERDAL [Suspect]
     Route: 048
  4. TEGRETOL [Suspect]
     Indication: SCHIZOPHRENIA
     Route: 048
  5. ZYPREXA [Suspect]
     Route: 048
  6. ZYPREXA [Suspect]
     Route: 048
  7. ZYPREXA [Suspect]
     Indication: SCHIZOPHRENIA
     Route: 048
  8. LODOPIN [Concomitant]

REACTIONS (1)
  - STEVENS-JOHNSON SYNDROME [None]
